FAERS Safety Report 17663911 (Version 2)
Quarter: 2020Q2

REPORT INFORMATION
  Report Type: Spontaneous
  Country: GB (occurrence: GB)
  Receive Date: 20200414
  Receipt Date: 20200421
  Transmission Date: 20200713
  Serious: Yes (Death, Other)
  Sender: FDA-Public Use
  Company Number: GB-LUPIN PHARMACEUTICALS INC.-2020-01651

PATIENT
  Age: 45 Year
  Sex: Female

DRUGS (8)
  1. MORPHINE [Suspect]
     Active Substance: MORPHINE
     Dosage: 1 DOSAGE FORM (Q4H)
     Route: 048
     Dates: start: 20150320
  2. MORPHINE [Suspect]
     Active Substance: MORPHINE
     Dosage: UNK (10 MG/5MLS AS REQUIRED BASIS EVERY 4 HOURS, FURTHER 100 ML )
     Route: 048
     Dates: start: 20150629
  3. PREGABALIN. [Suspect]
     Active Substance: PREGABALIN
     Indication: PRODUCT USED FOR UNKNOWN INDICATION
     Dosage: UNK
     Route: 065
     Dates: start: 20150303
  4. TRAMADOL. [Suspect]
     Active Substance: TRAMADOL
     Indication: PRODUCT USED FOR UNKNOWN INDICATION
     Dosage: UNK
     Route: 065
  5. MORPHINE [Suspect]
     Active Substance: MORPHINE
     Indication: PRODUCT USED FOR UNKNOWN INDICATION
     Dosage: 90 MILLIGRAM, BID
     Route: 048
  6. MORPHINE [Suspect]
     Active Substance: MORPHINE
     Dosage: UNK (10 MG/5MLS AS REQUIRED BASIS EVERY 4 HOURS, FURTHER 280 ML )
     Route: 048
     Dates: start: 20180703
  7. MORPHINE [Suspect]
     Active Substance: MORPHINE
     Dosage: UNK (10 MG/5MLS, 500 ML )
     Route: 048
     Dates: start: 20180703
  8. MIRTAZAPINE. [Suspect]
     Active Substance: MIRTAZAPINE
     Indication: PRODUCT USED FOR UNKNOWN INDICATION
     Dosage: UNK
     Route: 065

REACTIONS (4)
  - Adverse drug reaction [Fatal]
  - Toxicity to various agents [Fatal]
  - Medication error [Fatal]
  - Pain [Fatal]

NARRATIVE: CASE EVENT DATE: 20150320
